FAERS Safety Report 19972365 (Version 2)
Quarter: 2023Q2

REPORT INFORMATION
  Report Type: Spontaneous
  Country: US (occurrence: US)
  Receive Date: 20211019
  Receipt Date: 20230601
  Transmission Date: 20230722
  Serious: Yes (Life-Threatening, Other)
  Sender: FDA-Public Use
  Company Number: US-EXELA PHARMA SCIENCES, LLC-2021EXL00030

PATIENT
  Age: 73 Year
  Sex: Female
  Weight: 112 kg

DRUGS (9)
  1. TRANEXAMIC ACID [Suspect]
     Active Substance: TRANEXAMIC ACID
     Indication: Knee operation
     Dosage: 1 G, TWICE (PRE-OP AND POST-OP)
     Dates: start: 202109, end: 202109
  2. TRANEXAMIC ACID [Suspect]
     Active Substance: TRANEXAMIC ACID
     Dosage: 1 G, TWICE (PRE-OP AND POST-OP)
     Dates: start: 20210917, end: 20210917
  3. ASPIRIN [Concomitant]
     Active Substance: ASPIRIN
  4. UNSPECIFIED PROBIOTIC [Concomitant]
  5. VITAMIN D3 [Concomitant]
     Active Substance: CHOLECALCIFEROL
  6. CITALOPRAM [Concomitant]
     Active Substance: CITALOPRAM HYDROBROMIDE
  7. LISINOPRIL [Concomitant]
     Active Substance: LISINOPRIL
  8. METOPROLOL [Concomitant]
     Active Substance: METOPROLOL
  9. MYRBETRIQ [Concomitant]
     Active Substance: MIRABEGRON

REACTIONS (2)
  - Anaphylactic reaction [Recovered/Resolved]
  - Off label use [Recovered/Resolved]

NARRATIVE: CASE EVENT DATE: 20210901
